FAERS Safety Report 6353247-1 (Version None)
Quarter: 2009Q3

REPORT INFORMATION
  Report Type: 
  Country: None (occurrence: None)
  Receive Date: 20090912
  Receipt Date: 20090622
  Transmission Date: 20100115
  Serious: No
  Sender: FDA-Public Use
  Company Number: US-ABBOTT-08P-163-0456935-00

PATIENT
  Sex: Male

DRUGS (2)
  1. HUMIRA [Suspect]
     Indication: ANKYLOSING SPONDYLITIS
     Route: 058
     Dates: start: 20080401
  2. PAIN MEDS [Concomitant]
     Indication: PAIN
     Route: 048

REACTIONS (4)
  - ACCIDENTAL NEEDLE STICK [None]
  - CONTUSION [None]
  - INCORRECT DOSE ADMINISTERED [None]
  - PNEUMONIA [None]
